FAERS Safety Report 9054844 (Version 3)
Quarter: 2013Q1

REPORT INFORMATION
  Report Type: Spontaneous
  Country: US (occurrence: US)
  Receive Date: 20130208
  Receipt Date: 20130312
  Transmission Date: 20140127
  Serious: Yes (Other)
  Sender: FDA-Public Use
  Company Number: US-FRI-1000042432

PATIENT
  Age: 63 Year
  Sex: Female

DRUGS (6)
  1. TUDORZA PRESSAIR [Suspect]
     Indication: CHRONIC OBSTRUCTIVE PULMONARY DISEASE
     Dosage: 800 MCG
     Route: 055
     Dates: start: 20130205, end: 201302
  2. ADVAIR [Concomitant]
  3. OXYGEN [Concomitant]
     Dosage: 0.5-1.5 LITERS
  4. CARDIZEM [Concomitant]
     Indication: HEART RATE INCREASED
  5. THYROID PILL (NOS) [Concomitant]
     Indication: HYPOTHYROIDISM
  6. KLONOPIN [Concomitant]

REACTIONS (8)
  - Heart rate increased [Recovered/Resolved]
  - Oxygen saturation decreased [Recovered/Resolved]
  - Product taste abnormal [Recovered/Resolved]
  - Dyspnoea [Recovered/Resolved]
  - Anxiety [Recovered/Resolved]
  - Cough [Recovered/Resolved]
  - Rhinorrhoea [Recovered/Resolved]
  - Nausea [Recovered/Resolved]
